FAERS Safety Report 10262893 (Version 1)
Quarter: 2014Q2

REPORT INFORMATION
  Report Type: Report from Study
  Country: US (occurrence: US)
  Receive Date: 20140626
  Receipt Date: 20140626
  Transmission Date: 20141212
  Serious: Yes (Death)
  Sender: FDA-Public Use
  Company Number: US-MYLANLABS-2013S1021539

PATIENT
  Age: 70 Year
  Sex: Male

DRUGS (7)
  1. CLOZAPINE TABLETS [Suspect]
     Route: 048
     Dates: end: 2013
  2. LEVOTHYROXINE [Concomitant]
     Route: 048
  3. SYMBICORT [Concomitant]
     Dosage: 160/4.5MG
     Route: 055
  4. VITAMIN D [Concomitant]
  5. MIRALAX /06344701/ [Concomitant]
     Route: 048
  6. OMEPRAZOLE [Concomitant]
     Route: 048
  7. VALPROIC ACID [Concomitant]
     Route: 048

REACTIONS (1)
  - Death [Fatal]
